FAERS Safety Report 26206126 (Version 1)
Quarter: 2025Q4

REPORT INFORMATION
  Report Type: Report from Study
  Country: JP (occurrence: JP)
  Receive Date: 20251229
  Receipt Date: 20251229
  Transmission Date: 20260118
  Serious: Yes (Other)
  Sender: ROCHE
  Company Number: JP-CHUGAI-2025042268AA

PATIENT
  Age: 63 Year

DRUGS (1)
  1. TECENTRIQ [Suspect]
     Active Substance: ATEZOLIZUMAB
     Indication: Neuroendocrine tumour of the lung
     Route: 041

REACTIONS (5)
  - Neutrophil count decreased [Unknown]
  - White blood cell count decreased [Unknown]
  - Platelet count decreased [Unknown]
  - Alopecia [Unknown]
  - Anaemia [Unknown]
